FAERS Safety Report 24888828 (Version 1)
Quarter: 2025Q1

REPORT INFORMATION
  Report Type: Spontaneous
  Country: US (occurrence: US)
  Receive Date: 20250127
  Receipt Date: 20250127
  Transmission Date: 20250409
  Serious: No
  Sender: MYLAN
  Company Number: US-MYLANLABS-2025M1004373

PATIENT
  Sex: Female

DRUGS (3)
  1. SCOPOLAMINE TRANSDERMAL SYSTEM [Suspect]
     Active Substance: SCOPOLAMINE
     Indication: Dizziness
     Route: 062
     Dates: start: 2016
  2. SCOPOLAMINE TRANSDERMAL SYSTEM [Suspect]
     Active Substance: SCOPOLAMINE
     Dosage: 1 MILLIGRAM, Q3D (PER 3 DAY)
     Route: 062
     Dates: start: 20241201
  3. SCOPOLAMINE TRANSDERMAL SYSTEM [Suspect]
     Active Substance: SCOPOLAMINE
     Dosage: 1 MILLIGRAM, Q3D (PER 3 DAY)
     Route: 062
     Dates: start: 20241201, end: 20250112

REACTIONS (3)
  - Illness [Unknown]
  - Off label use [Unknown]
  - Product adhesion issue [Unknown]

NARRATIVE: CASE EVENT DATE: 20160101
